FAERS Safety Report 5016683-1 (Version None)
Quarter: 2006Q2

REPORT INFORMATION
  Report Type: 
  Country: None (occurrence: None)
  Receive Date: 20060414
  Receipt Date: 20060126
  Transmission Date: 20061013
  Serious: No
  Sender: FDA-Public Use
  Company Number: 2006SP000461

PATIENT
  Age: 84 Year
  Sex: Female
  Weight: 55.3388 kg

DRUGS (6)
  1. LUNESTA [Suspect]
     Indication: INSOMNIA
     Dosage: 2 MG;HS;ORAL
     Route: 048
     Dates: start: 20060113, end: 20060115
  2. ATENOLOL [Concomitant]
  3. CLONIDINE [Concomitant]
  4. AMLODIPINE [Concomitant]
  5. TRICOR [Concomitant]
  6. IRON [Concomitant]

REACTIONS (1)
  - PARADOXICAL DRUG REACTION [None]
